FAERS Safety Report 6800723-0 (Version None)
Quarter: 2010Q2

REPORT INFORMATION
  Report Type: 
  Country: None (occurrence: None)
  Receive Date: 20100623
  Receipt Date: 20100617
  Transmission Date: 20101027
  Serious: Yes (Death, Other)
  Sender: FDA-Public Use
  Company Number: 2010SP034272

PATIENT
  Age: 62 Year
  Sex: Female

DRUGS (3)
  1. INTERFERON (MANUFACTURER UNKNOWN) (INTERFERON ALFA-2B) [Suspect]
  2. RIBAVIRIN [Suspect]
  3. TAMOXIFEN [Concomitant]

REACTIONS (11)
  - CHOLANGITIS [None]
  - DEVICE MALFUNCTION [None]
  - FATIGUE [None]
  - HAEMOLYTIC ANAEMIA [None]
  - HYPOPHAGIA [None]
  - LOCALISED INTRAABDOMINAL FLUID COLLECTION [None]
  - PERITONITIS BACTERIAL [None]
  - SCLEROSING ENCAPSULATING PERITONITIS [None]
  - SMALL INTESTINAL OBSTRUCTION [None]
  - VOMITING [None]
  - WEIGHT DECREASED [None]
